FAERS Safety Report 24831228 (Version 1)
Quarter: 2025Q1

REPORT INFORMATION
  Report Type: Report from Study
  Country: US (occurrence: US)
  Receive Date: 20250110
  Receipt Date: 20250110
  Transmission Date: 20250409
  Serious: No
  Sender: SANDOZ
  Company Number: US-SANDOZ-SDZ2025US001451

PATIENT
  Age: 17 Year
  Sex: Male

DRUGS (2)
  1. OMNITROPE [Suspect]
     Active Substance: SOMATROPIN
     Indication: Product used for unknown indication
     Dosage: 1.4 MG, QD
     Route: 058
     Dates: start: 20250107
  2. OMNITROPE [Suspect]
     Active Substance: SOMATROPIN
     Indication: Product used for unknown indication
     Dosage: 1.4 MG, QD
     Route: 058
     Dates: start: 20250107

REACTIONS (2)
  - Drug dose omission by device [Unknown]
  - Device breakage [Unknown]

NARRATIVE: CASE EVENT DATE: 20250107
